FAERS Safety Report 8961718 (Version 1)
Quarter: 2012Q4

REPORT INFORMATION
  Report Type: 
  Country: GB (occurrence: GB)
  Receive Date: 20121213
  Receipt Date: 20121213
  Transmission Date: 20130627
  Serious: Yes (Other)
  Sender: FDA-Public Use
  Company Number: GB-JNJFOC-20121204412

PATIENT
  Age: 75 Year
  Sex: Female
  Weight: 66 kg

DRUGS (7)
  1. XARELTO [Suspect]
     Indication: CEREBROVASCULAR ACCIDENT PROPHYLAXIS
     Route: 048
     Dates: start: 20120803
  2. XARELTO [Suspect]
     Indication: ATRIAL FIBRILLATION
     Route: 048
     Dates: start: 20120803
  3. SIMVASTATIN [Concomitant]
     Route: 048
  4. LERCANIDIPINE [Concomitant]
     Route: 048
  5. BENDROFLUMETHIAZIDE [Concomitant]
     Indication: HYPERTENSION
     Route: 048
     Dates: start: 20120523, end: 20121114
  6. BISOPROLOL [Concomitant]
     Route: 048
  7. RAMIPRIL [Concomitant]
     Route: 048

REACTIONS (1)
  - Hyponatraemia [Recovering/Resolving]
